FAERS Safety Report 6496273-4 (Version None)
Quarter: 2009Q4

REPORT INFORMATION
  Report Type: 
  Country: None (occurrence: None)
  Receive Date: 20091214
  Receipt Date: 20091125
  Transmission Date: 20100525
  Serious: No
  Sender: FDA-Public Use
  Company Number: US-BRISTOL-MYERS SQUIBB COMPANY-14788558

PATIENT
  Age: 73 Year
  Sex: Female
  Weight: 59 kg

DRUGS (5)
  1. ABILIFY [Suspect]
     Indication: DEPRESSION
     Dosage: LOWRED TO 5MG ? TAB +INCRSD TO 5MG/D +INCSD TO 7MG/D +INC TO 10MG/D.BTCH:9F48184B,NDC:59148-008-13
     Dates: start: 20081110
  2. ZOLOFT [Suspect]
     Indication: DEPRESSION
  3. AMBIEN [Concomitant]
  4. ATIVAN [Concomitant]
  5. FIORICET [Concomitant]

REACTIONS (3)
  - BLOOD CHOLESTEROL INCREASED [None]
  - BLOOD TRIGLYCERIDES INCREASED [None]
  - WEIGHT INCREASED [None]
